FAERS Safety Report 24449880 (Version 1)
Quarter: 2024Q4

REPORT INFORMATION
  Report Type: Spontaneous
  Country: US (occurrence: None)
  Receive Date: 20241016
  Receipt Date: 20241016
  Transmission Date: 20250115
  Serious: No
  Sender: Public
  Company Number: None

PATIENT
  Age: 73 Year
  Sex: Male

DRUGS (6)
  1. HYDROXYZINE HYDROCHLORIDE [Suspect]
     Active Substance: HYDROXYZINE HYDROCHLORIDE
     Indication: Pain
     Dosage: FREQUENCY : AS NEEDED;?
     Route: 048
     Dates: start: 20231029, end: 20231029
  2. HYDROMORPHONE [Suspect]
     Active Substance: HYDROMORPHONE
     Indication: Pain
     Dosage: OTHER FREQUENCY : ONCE;?
     Route: 042
     Dates: start: 20231028, end: 20231030
  3. METHOCARBAMOL [Suspect]
     Active Substance: METHOCARBAMOL
  4. OXYCODONE [Suspect]
     Active Substance: OXYCODONE
  5. PIPERACILLIN SODIUM\TAZOBACTAM SODIUM [Suspect]
     Active Substance: PIPERACILLIN SODIUM\TAZOBACTAM SODIUM
  6. ACETAMINOPHEN [Suspect]
     Active Substance: ACETAMINOPHEN

REACTIONS (6)
  - Hypotension [None]
  - Mean arterial pressure decreased [None]
  - Anaphylactic reaction [None]
  - Blood lactic acid increased [None]
  - White blood cell count increased [None]
  - Lethargy [None]

NARRATIVE: CASE EVENT DATE: 20231029
